FAERS Safety Report 9054584 (Version 1)
Quarter: 2013Q1

REPORT INFORMATION
  Report Type: Spontaneous
  Country: US (occurrence: US)
  Receive Date: 20130208
  Receipt Date: 20130208
  Transmission Date: 20140127
  Serious: No
  Sender: FDA-Public Use
  Company Number: US-ASTRAZENECA-2013SE07408

PATIENT
  Sex: Female

DRUGS (1)
  1. NEXIUM [Suspect]
     Indication: NECROSIS
     Dosage: TWICE A DAY
     Route: 048

REACTIONS (3)
  - Aphagia [Unknown]
  - Off label use [Unknown]
  - Off label use [Unknown]
